FAERS Safety Report 8445777-3 (Version None)
Quarter: 2012Q2

REPORT INFORMATION
  Report Type: 
  Country: None (occurrence: None)
  Receive Date: 20120618
  Receipt Date: 20120614
  Transmission Date: 20120825
  Serious: Yes (Hospitalization, Other)
  Sender: FDA-Public Use
  Company Number: TW-GLAXOSMITHKLINE-B0808840A

PATIENT
  Age: 78 Year
  Sex: Male
  Weight: 68.7 kg

DRUGS (5)
  1. METFORMIN HCL [Suspect]
     Indication: PRODUCT USED FOR UNKNOWN INDICATION
     Dosage: 500MG THREE TIMES PER DAY
     Route: 065
  2. DILTIAZEM HYDROCHOLORIDE [Concomitant]
  3. GLIMEPIRIDE [Concomitant]
     Dosage: 2MG THREE TIMES PER DAY
  4. DIGOXIN [Concomitant]
  5. AVANDIA [Suspect]
     Indication: TYPE 2 DIABETES MELLITUS
     Dosage: 4MG PER DAY
     Route: 065
     Dates: start: 20081028, end: 20090512

REACTIONS (12)
  - ALTERED STATE OF CONSCIOUSNESS [None]
  - LEUKOCYTOSIS [None]
  - HEPATITIS ACUTE [None]
  - BLOOD GLUCOSE INCREASED [None]
  - HEPATIC FAILURE [None]
  - LACTIC ACIDOSIS [None]
  - BLOOD BILIRUBIN INCREASED [None]
  - LEPTOSPIROSIS [None]
  - DISSEMINATED INTRAVASCULAR COAGULATION [None]
  - HYPEROSMOLAR STATE [None]
  - SEPSIS [None]
  - RESPIRATORY FAILURE [None]
